FAERS Safety Report 5109814-6 (Version None)
Quarter: 2006Q3

REPORT INFORMATION
  Report Type: 
  Country: None (occurrence: None)
  Receive Date: 20060918
  Receipt Date: 20060918
  Transmission Date: 20061208
  Serious: Yes (Life-Threatening)
  Sender: FDA-Public Use
  Company Number: None

PATIENT
  Age: 63 Year
  Sex: Male
  Weight: 68.9467 kg

DRUGS (2)
  1. CIPRO [Suspect]
     Indication: BIOPSY PROSTATE
     Dosage: AM 2 DAYS PO
     Route: 048
     Dates: start: 20060906, end: 20060907
  2. CIPRO [Suspect]
     Indication: PROPHYLAXIS
     Dosage: AM 2 DAYS PO
     Route: 048
     Dates: start: 20060906, end: 20060907

REACTIONS (1)
  - CHILLS [None]
